FAERS Safety Report 8773956 (Version 1)
Quarter: 2012Q4

REPORT INFORMATION
  Report Type: 
  Country: AU (occurrence: AU)
  Receive Date: 20120908
  Receipt Date: 20120908
  Transmission Date: 20130627
  Serious: Yes (Hospitalization, Other)
  Sender: FDA-Public Use
  Company Number: AU-ABBOTT-12P-008-0976762-00

PATIENT
  Age: 56 Year
  Sex: Female

DRUGS (7)
  1. VALPROATE SODIUM [Suspect]
     Indication: CONVULSION PROPHYLAXIS
     Dosage: Daily
  2. VALPROATE SODIUM [Interacting]
  3. MEROPENEM [Interacting]
     Indication: NEUTROPENIC SEPSIS
     Route: 042
  4. MEROPENEM [Interacting]
     Indication: PNEUMONIA
  5. CEFTRIAXONE [Concomitant]
     Indication: PRODUCT USED FOR UNKNOWN INDICATION
  6. METRONIDAZOLE [Concomitant]
     Indication: PRODUCT USED FOR UNKNOWN INDICATION
  7. TOPIRAMATE [Concomitant]
     Indication: PRODUCT USED FOR UNKNOWN INDICATION

REACTIONS (5)
  - Altered state of consciousness [Recovering/Resolving]
  - Anticonvulsant drug level decreased [Recovering/Resolving]
  - Grand mal convulsion [Recovering/Resolving]
  - Anticonvulsant drug level decreased [Recovering/Resolving]
  - Drug interaction [Recovering/Resolving]
